FAERS Safety Report 6875134-2 (Version None)
Quarter: 2010Q3

REPORT INFORMATION
  Report Type: 
  Country: None (occurrence: None)
  Receive Date: 20100727
  Receipt Date: 20070702
  Transmission Date: 20110219
  Serious: Yes (Hospitalization, Other)
  Sender: FDA-Public Use
  Company Number: US-PFIZER INC-2006112144

PATIENT
  Sex: Male
  Weight: 93 kg

DRUGS (9)
  1. CELEBREX [Suspect]
     Indication: PAIN
     Dates: start: 19990222, end: 20000530
  2. BEXTRA [Suspect]
     Indication: PAIN
     Dates: start: 20011101, end: 20041201
  3. VIOXX [Suspect]
     Indication: PRODUCT USED FOR UNKNOWN INDICATION
     Route: 065
     Dates: start: 20000209
  4. DYAZIDE [Concomitant]
  5. GLUCOPHAGE [Concomitant]
  6. LIPITOR [Concomitant]
  7. PLENDIL [Concomitant]
  8. TYLENOL W/ CODEINE [Concomitant]
  9. VICODIN [Concomitant]

REACTIONS (2)
  - DYSPEPSIA [None]
  - MYOCARDIAL INFARCTION [None]
